FAERS Safety Report 10233842 (Version 2)
Quarter: 2014Q2

REPORT INFORMATION
  Report Type: Spontaneous
  Country: FR (occurrence: FR)
  Receive Date: 20140612
  Receipt Date: 20140620
  Transmission Date: 20141212
  Serious: Yes (Death, Hospitalization, Other)
  Sender: FDA-Public Use
  Company Number: FR-ACTAVIS-2014-12195

PATIENT
  Age: 47 Year
  Sex: Male

DRUGS (4)
  1. CARBOPLATIN (UNKNOWN) [Suspect]
     Indication: MYCOSIS FUNGOIDES REFRACTORY
     Dosage: UNKNOWN
     Route: 065
     Dates: start: 201102
  2. DEXAMETHASONE (UNKNOWN) [Suspect]
     Indication: MYCOSIS FUNGOIDES REFRACTORY
     Dosage: UNKNOWN
     Route: 065
     Dates: start: 201102
  3. CYTARABINE [Suspect]
     Indication: MYCOSIS FUNGOIDES REFRACTORY
     Dosage: UNKNOWN
     Route: 065
  4. PEGFILGRASTIM [Suspect]
     Indication: MYCOSIS FUNGOIDES REFRACTORY
     Dosage: UNK
     Route: 065
     Dates: start: 201102

REACTIONS (5)
  - Acute febrile neutrophilic dermatosis [Fatal]
  - Pancytopenia [Recovered/Resolved]
  - Febrile neutropenia [Recovered/Resolved]
  - Disease progression [Fatal]
  - Drug ineffective [Fatal]
